FAERS Safety Report 7204391-8 (Version None)
Quarter: 2010Q4

REPORT INFORMATION
  Report Type: 
  Country: None (occurrence: None)
  Receive Date: 20101220
  Receipt Date: 20101209
  Transmission Date: 20110411
  Serious: Yes (Disabling)
  Sender: FDA-Public Use
  Company Number: TCI2010A04998

PATIENT
  Age: 39 Year
  Sex: Female

DRUGS (7)
  1. ACTOS [Suspect]
     Indication: TYPE 2 DIABETES MELLITUS
     Dosage: SEE IMAGE
     Route: 048
     Dates: start: 20090702, end: 20091028
  2. ACTOS [Suspect]
     Indication: TYPE 2 DIABETES MELLITUS
     Dosage: SEE IMAGE
     Route: 048
     Dates: start: 20091029, end: 20100217
  3. ACTOS [Suspect]
     Indication: TYPE 2 DIABETES MELLITUS
     Dosage: SEE IMAGE
     Route: 048
     Dates: start: 20100218, end: 20100929
  4. ACTOS [Suspect]
     Indication: TYPE 2 DIABETES MELLITUS
     Dosage: SEE IMAGE
     Route: 048
     Dates: start: 20100930, end: 20101028
  5. METFORMIN HYDROCHLORIDE [Concomitant]
  6. AMARYL [Concomitant]
  7. LIPITOR [Concomitant]

REACTIONS (3)
  - DIABETIC RETINOPATHY [None]
  - OEDEMA [None]
  - WEIGHT INCREASED [None]
